FAERS Safety Report 8921937 (Version 1)
Quarter: 2012Q4

REPORT INFORMATION
  Report Type: Spontaneous
  Country: US (occurrence: None)
  Receive Date: 20121119
  Receipt Date: 20121119
  Transmission Date: 20130627
  Serious: Yes (Hospitalization, Other)
  Sender: FDA-Public Use
  Company Number: None

PATIENT
  Age: 23 Year
  Sex: Female
  Weight: 81.65 kg

DRUGS (2)
  1. TRAMADOL HCL [Suspect]
  2. FLUOXETINE [Suspect]

REACTIONS (2)
  - Grand mal convulsion [None]
  - Drug interaction [None]
